FAERS Safety Report 9648877 (Version 1)
Quarter: 2013Q4

REPORT INFORMATION
  Report Type: Spontaneous
  Country: US (occurrence: US)
  Receive Date: 20131028
  Receipt Date: 20131028
  Transmission Date: 20140711
  Serious: No
  Sender: FDA-Public Use
  Company Number: US-PFIZER INC-2013303676

PATIENT
  Sex: Male

DRUGS (2)
  1. ADVIL [Suspect]
     Indication: ANALGESIC THERAPY
     Dosage: 200 MG, UNK
  2. ADVIL PM [Suspect]
     Dosage: UNK

REACTIONS (4)
  - Drug dispensing error [Unknown]
  - Poor quality drug administered [Unknown]
  - Somnolence [Unknown]
  - Product commingling [Unknown]
